FAERS Safety Report 15589017 (Version 3)
Quarter: 2019Q1

REPORT INFORMATION
  Report Type: Spontaneous
  Country: PL (occurrence: PL)
  Receive Date: 20181106
  Receipt Date: 20190211
  Transmission Date: 20190417
  Serious: Yes (Disabling, Other)
  Sender: FDA-Public Use
  Company Number: PL-SUN PHARMACEUTICAL INDUSTRIES LTD-2018RR-190085

PATIENT
  Age: 65 Year
  Sex: Female

DRUGS (7)
  1. GABAPENTIN. [Suspect]
     Active Substance: GABAPENTIN
     Indication: GLOSSODYNIA
     Dosage: 300 MG, TID
     Route: 065
  2. TRAMADOL/PARACETAMOL [Suspect]
     Active Substance: ACETAMINOPHEN\TRAMADOL
     Indication: GLOSSODYNIA
     Dosage: 75 MG + 650 MG IN 1 TABLET
     Route: 065
  3. VENLAFAXINE [Suspect]
     Active Substance: VENLAFAXINE HYDROCHLORIDE
     Indication: DEPRESSION
     Dosage: 75 MG, DAILY
     Route: 065
  4. MIANSERIN [Suspect]
     Active Substance: MIANSERIN
     Dosage: 30 MG, DAILY
     Route: 065
  5. VENLAFAXINE [Suspect]
     Active Substance: VENLAFAXINE HYDROCHLORIDE
     Dosage: 225 MG, DAILY
     Route: 065
  6. MIANSERIN [Suspect]
     Active Substance: MIANSERIN
     Indication: SLEEP DISORDER
     Dosage: 10 MG, DAILY
     Route: 065
  7. METFORMIN [Concomitant]
     Active Substance: METFORMIN HYDROCHLORIDE
     Indication: TYPE 2 DIABETES MELLITUS
     Dosage: 2000 MG, DAILY
     Route: 065

REACTIONS (13)
  - Glossodynia [Recovered/Resolved]
  - Condition aggravated [Unknown]
  - Drug effect incomplete [Unknown]
  - Increased appetite [Unknown]
  - Sedation complication [Unknown]
  - Hyperhidrosis [Unknown]
  - Pain [Recovered/Resolved]
  - Drug interaction [Unknown]
  - Off label use [Unknown]
  - Diabetes mellitus [Unknown]
  - Blood glucose abnormal [Unknown]
  - Dizziness [Unknown]
  - Fatigue [Unknown]
